FAERS Safety Report 12179957 (Version 1)
Quarter: 2016Q1

REPORT INFORMATION
  Report Type: Report from Study
  Country: GB (occurrence: GB)
  Receive Date: 20160314
  Receipt Date: 20160314
  Transmission Date: 20160526
  Serious: Yes (Other)
  Sender: FDA-Public Use
  Company Number: GB-AMGEN-GBRNI2016030141

PATIENT

DRUGS (2)
  1. SULPHASALAZINE [Concomitant]
     Active Substance: SULFASALAZINE
     Dosage: UNK
     Route: 064
  2. ENBREL [Suspect]
     Active Substance: ETANERCEPT
     Indication: MATERNAL EXPOSURE DURING PREGNANCY
     Dosage: 50 MG, UNK
     Route: 064
     Dates: start: 20100129, end: 20100709

REACTIONS (2)
  - Maternal exposure during pregnancy [Unknown]
  - Foetal monitoring abnormal [Unknown]

NARRATIVE: CASE EVENT DATE: 20120827
